FAERS Safety Report 8022452-0 (Version None)
Quarter: 2012Q1

REPORT INFORMATION
  Report Type: 
  Country: None (occurrence: None)
  Receive Date: 20120104
  Receipt Date: 20120103
  Transmission Date: 20120608
  Serious: Yes (Other)
  Sender: FDA-Public Use
  Company Number: US-ROCHE-1026999

PATIENT

DRUGS (6)
  1. FOSAMAX [Suspect]
     Indication: OSTEITIS DEFORMANS
  2. BONIVA [Suspect]
     Indication: OSTEOPENIA
  3. BONIVA [Suspect]
     Indication: OSTEOPOROSIS
     Dates: start: 20000601, end: 20081201
  4. BONIVA [Suspect]
     Indication: OSTEITIS DEFORMANS
  5. FOSAMAX [Suspect]
     Indication: OSTEOPENIA
  6. FOSAMAX [Suspect]
     Indication: OSTEOPOROSIS
     Dates: start: 20000601, end: 20081201

REACTIONS (2)
  - EMOTIONAL DISTRESS [None]
  - FEMUR FRACTURE [None]
